FAERS Safety Report 14453529 (Version 1)
Quarter: 2018Q1

REPORT INFORMATION
  Report Type: Spontaneous
  Country: US (occurrence: US)
  Receive Date: 20180127
  Receipt Date: 20180127
  Transmission Date: 20180509
  Serious: No
  Sender: FDA-Public Use
  Company Number: None

PATIENT
  Sex: Male
  Weight: 74.25 kg

DRUGS (5)
  1. CEFAZOLIN [Concomitant]
     Active Substance: CEFAZOLIN
  2. HEPARIN [Concomitant]
     Active Substance: HEPARIN SODIUM
  3. CEFAZOLIN [Suspect]
     Active Substance: CEFAZOLIN
     Indication: POST PROCEDURAL INFECTION
     Dosage: ?          QUANTITY:1 INJECTION(S);?
     Route: 042
     Dates: start: 20171223, end: 20180123
  4. XARELTO [Concomitant]
     Active Substance: RIVAROXABAN
  5. CEFAZOLIN [Suspect]
     Active Substance: CEFAZOLIN
     Indication: STAPHYLOCOCCAL INFECTION
     Dosage: ?          QUANTITY:1 INJECTION(S);?
     Route: 042
     Dates: start: 20171223, end: 20180123

REACTIONS (4)
  - Muscle tightness [None]
  - White blood cell count decreased [None]
  - Infusion related reaction [None]
  - Platelet count decreased [None]

NARRATIVE: CASE EVENT DATE: 20180121
